FAERS Safety Report 25922692 (Version 1)
Quarter: 2025Q4

REPORT INFORMATION
  Report Type: Spontaneous
  Country: GB (occurrence: GB)
  Receive Date: 20251015
  Receipt Date: 20251015
  Transmission Date: 20260118
  Serious: Yes (Other)
  Sender: TORRENT PHARMA INC.
  Company Number: None

PATIENT
  Age: 4 Year
  Sex: Male
  Weight: 20 kg

DRUGS (3)
  1. MONTELUKAST SODIUM [Suspect]
     Active Substance: MONTELUKAST SODIUM
     Indication: Ill-defined disorder
     Dosage: CHEW ONE TABLET AT NIGHT
     Route: 065
     Dates: start: 20250926
  2. BECLOMETHASONE DIPROPIONATE [Concomitant]
     Active Substance: BECLOMETHASONE DIPROPIONATE
     Indication: Ill-defined disorder
     Dosage: TWO PUFFS TO BE INHALED TWICE DAILY. (PLEASE RE...
     Route: 055
     Dates: start: 20250519
  3. ALBUTEROL [Concomitant]
     Active Substance: ALBUTEROL
     Indication: Asthma
     Dosage: INHALE ONE OR TWO PUFFS AS NEEDED FOR ASTHMA SY...
     Route: 055
     Dates: start: 20250519

REACTIONS (2)
  - Anxiety [Recovering/Resolving]
  - Abnormal behaviour [Unknown]
